FAERS Safety Report 9457543 (Version 1)
Quarter: 2013Q3

REPORT INFORMATION
  Report Type: Spontaneous
  Country: US (occurrence: None)
  Receive Date: 20130812
  Receipt Date: 20130812
  Transmission Date: 20140515
  Serious: Yes (Other)
  Sender: FDA-Public Use
  Company Number: None

PATIENT
  Age: 27 Year
  Sex: Female
  Weight: 74.84 kg

DRUGS (1)
  1. SYEDA [Suspect]
     Indication: CONTRACEPTION
     Dosage: 1 PILL ONCE DAILY TAKEN BY MOUTH
     Route: 048
     Dates: start: 20130714, end: 20130715

REACTIONS (6)
  - Neck pain [None]
  - Depressed mood [None]
  - Fatigue [None]
  - Emotional disorder [None]
  - Disturbance in attention [None]
  - Asthenia [None]
